FAERS Safety Report 9116310 (Version 1)
Quarter: 2013Q1

REPORT INFORMATION
  Report Type: Spontaneous
  Country: US (occurrence: US)
  Receive Date: 20130225
  Receipt Date: 20130225
  Transmission Date: 20140127
  Serious: Yes (Hospitalization, Other)
  Sender: FDA-Public Use
  Company Number: US-TEVA-387465USA

PATIENT
  Age: 44 Year
  Sex: Female

DRUGS (3)
  1. TAMOXIFEN [Suspect]
     Route: 065
  2. HEPARIN [Suspect]
     Indication: BUDD-CHIARI SYNDROME
     Route: 050
  3. CEFTRIAXONE [Concomitant]
     Indication: BACTERASCITES
     Route: 065

REACTIONS (3)
  - Budd-Chiari syndrome [Recovering/Resolving]
  - Heparin-induced thrombocytopenia [Recovered/Resolved]
  - Heparin-induced thrombocytopenia [Recovered/Resolved]
